FAERS Safety Report 8619630-6 (Version None)
Quarter: 2012Q3

REPORT INFORMATION
  Report Type: 
  Country: None (occurrence: None)
  Receive Date: 20120824
  Receipt Date: 20101127
  Transmission Date: 20120928
  Serious: Yes (Other)
  Sender: FDA-Public Use
  Company Number: CO-PFIZER INC-2012203094

PATIENT
  Age: 59 Year
  Sex: Male

DRUGS (8)
  1. NORVASC [Suspect]
     Indication: HYPERTENSION
     Dosage: 5 MG, ONCE DAILY
  2. ACETYLSALICYLIC ACID [Concomitant]
     Dosage: 100 MG, ONCE DAILY
  3. LIPITOR [Suspect]
     Dosage: 20 MG, ONCE DAILY
  4. METOPROLOL TARTRATE [Concomitant]
     Dosage: 50 MG, ONCE DAILY
  5. OLMESARTAN MEDOXOMIL [Suspect]
     Indication: HYPERTENSION
     Dosage: 20 MG, ONCE DAILY
  6. LIPITOR [Suspect]
     Indication: DYSLIPIDAEMIA
     Dosage: 10 MG, ONCE DAILY
  7. AMLODIPINE [Concomitant]
     Dosage: 5 MG, TWICE DAILY
  8. LOSARTAN [Concomitant]
     Dosage: 50 MG,THREE TIMES DAILY

REACTIONS (4)
  - HYPERTENSIVE EMERGENCY [None]
  - LEUKOCYTURIA [None]
  - OBESITY [None]
  - EXERCISE LACK OF [None]
